FAERS Safety Report 5537171-X (Version None)
Quarter: 2007Q4

REPORT INFORMATION
  Report Type: 
  Country: None (occurrence: None)
  Receive Date: 20071205
  Receipt Date: 20071205
  Transmission Date: 20080405
  Serious: No
  Sender: FDA-Public Use
  Company Number: None

PATIENT
  Sex: Female
  Weight: 131.5431 kg

DRUGS (1)
  1. KLONOPIN [Suspect]
     Indication: GENERALISED ANXIETY DISORDER
     Dosage: 1.0 MG ONE BID

REACTIONS (1)
  - URTICARIA [None]
